FAERS Safety Report 15264012 (Version 1)
Quarter: 2018Q3

REPORT INFORMATION
  Report Type: Spontaneous
  Country: US (occurrence: US)
  Receive Date: 20180810
  Receipt Date: 20180810
  Transmission Date: 20181010
  Serious: Yes (Hospitalization, Other)
  Sender: FDA-Public Use
  Company Number: US-STRIDES ARCOLAB LIMITED-2017SP012861

PATIENT

DRUGS (3)
  1. ACETAZOLAMIDE. [Concomitant]
     Active Substance: ACETAZOLAMIDE
     Indication: IDIOPATHIC INTRACRANIAL HYPERTENSION
     Dosage: UNK
     Route: 065
  2. ACETAZOLAMIDE. [Concomitant]
     Active Substance: ACETAZOLAMIDE
     Dosage: DOSE INCREASED
     Route: 065
  3. TACROLIMUS. [Suspect]
     Active Substance: TACROLIMUS
     Indication: HEART TRANSPLANT
     Dosage: UNK
     Route: 065

REACTIONS (17)
  - Diarrhoea [Unknown]
  - Hyphaema [Unknown]
  - Cavernous sinus thrombosis [Unknown]
  - Retinal haemorrhage [Unknown]
  - Nausea [Unknown]
  - Intraocular pressure increased [Unknown]
  - Venous thrombosis [Unknown]
  - Vomiting [Unknown]
  - Pupillary disorder [Unknown]
  - Hypophagia [Unknown]
  - Thrombotic microangiopathy [Unknown]
  - Blindness [Not Recovered/Not Resolved]
  - Ophthalmic vein thrombosis [Unknown]
  - Periorbital oedema [Unknown]
  - Papilloedema [Unknown]
  - Ocular hyperaemia [Unknown]
  - Exophthalmos [Unknown]
